FAERS Safety Report 5596648-1 (Version None)
Quarter: 2008Q1

REPORT INFORMATION
  Report Type: 
  Country: None (occurrence: None)
  Receive Date: 20080118
  Receipt Date: 20080108
  Transmission Date: 20080703
  Serious: Yes (Other)
  Sender: FDA-Public Use
  Company Number: JP-PFIZER INC-2007104201

PATIENT
  Age: 39 Year
  Sex: Male

DRUGS (1)
  1. RELPAX [Suspect]
     Indication: MIGRAINE
     Dosage: DAILY DOSE:20MG
     Route: 048

REACTIONS (1)
  - ANGIOEDEMA [None]
